FAERS Safety Report 6344530-4 (Version None)
Quarter: 2009Q3

REPORT INFORMATION
  Report Type: 
  Country: None (occurrence: None)
  Receive Date: 20090908
  Receipt Date: 20090827
  Transmission Date: 20100115
  Serious: Yes (Other)
  Sender: FDA-Public Use
  Company Number: FR-PFIZER INC-2009193456

PATIENT
  Age: 71 Year

DRUGS (9)
  1. LYRICA [Suspect]
     Indication: BACK PAIN
     Dosage: 150 MG, 2X/DAY
  2. LYRICA [Suspect]
     Indication: PAIN
  3. LYRICA [Suspect]
     Indication: HEADACHE
  4. NARAMIG [Concomitant]
     Dosage: UNK
  5. TOPALGIC [Concomitant]
     Indication: PAIN
     Dosage: 100 MG, 3X/DAY
     Route: 048
  6. ELISOR [Concomitant]
     Indication: DYSLIPIDAEMIA
     Dosage: UNK DF, UNK
     Route: 048
  7. PRETERAX [Concomitant]
     Indication: HYPERTENSION
     Dosage: 1 DF, 1X/DAY
     Route: 048
  8. ACTONEL [Concomitant]
     Indication: OSTEOPOROSIS
     Route: 048
  9. IBUPROFENE [Concomitant]
     Dosage: UNK

REACTIONS (5)
  - CATARACT [None]
  - PAPILLOEDEMA [None]
  - RETINOPATHY [None]
  - VISUAL ACUITY REDUCED [None]
  - VISUAL FIELD DEFECT [None]
